FAERS Safety Report 18884137 (Version 1)
Quarter: 2021Q1

REPORT INFORMATION
  Report Type: Spontaneous
  Country: US (occurrence: US)
  Receive Date: 20210212
  Receipt Date: 20210212
  Transmission Date: 20210420
  Serious: Yes (Other)
  Sender: FDA-Public Use
  Company Number: US-HIKMA PHARMACEUTICALS USA INC.-US-H14001-21-00625

PATIENT
  Sex: Male

DRUGS (2)
  1. IPRATROPIUM BROMIDE. [Suspect]
     Active Substance: IPRATROPIUM BROMIDE
     Route: 045
  2. IPRATROPIUM BROMIDE. [Suspect]
     Active Substance: IPRATROPIUM BROMIDE
     Indication: PRODUCT USED FOR UNKNOWN INDICATION
     Route: 045

REACTIONS (8)
  - Adverse event [Unknown]
  - Visual impairment [Unknown]
  - Epistaxis [Unknown]
  - Dysphagia [Unknown]
  - Dysphonia [Unknown]
  - Lip swelling [Unknown]
  - Mouth swelling [Unknown]
  - Hypersensitivity [Unknown]
